FAERS Safety Report 14924734 (Version 1)
Quarter: 2018Q2

REPORT INFORMATION
  Report Type: Report from Study
  Country: ES (occurrence: ES)
  Receive Date: 20180522
  Receipt Date: 20180522
  Transmission Date: 20180711
  Serious: Yes (Life-Threatening, Hospitalization)
  Sender: FDA-Public Use
  Company Number: ES-CELGENEUS-ESP-20180504395

PATIENT
  Age: 58 Year
  Sex: Male
  Weight: 97 kg

DRUGS (44)
  1. DIGOXINA [Concomitant]
     Active Substance: DIGOXIN
     Dosage: .25 MILLIGRAM
     Route: 048
     Dates: start: 20180326, end: 20180327
  2. SINTROM [Concomitant]
     Active Substance: ACENOCOUMAROL
     Indication: ISCHAEMIC CARDIOMYOPATHY
     Dosage: 2 MILLIGRAM
     Route: 065
     Dates: start: 20170207
  3. SIMVASTATINA [Concomitant]
     Active Substance: SIMVASTATIN
     Indication: DYSLIPIDAEMIA
     Dosage: 40 MILLIGRAM
     Route: 065
     Dates: start: 20121122
  4. ENOXAPARINA [Concomitant]
     Active Substance: ENOXAPARIN
     Indication: PRODUCT USED FOR UNKNOWN INDICATION
     Dosage: 200 MILLIGRAM
     Route: 058
     Dates: start: 20180326, end: 20180404
  5. FOLIC ACID. [Concomitant]
     Active Substance: FOLIC ACID
     Dosage: 5 MILLIGRAM
     Route: 048
     Dates: start: 20180327, end: 20180404
  6. COTRIMOXAZOLE [Concomitant]
     Active Substance: SULFAMETHOXAZOLE\TRIMETHOPRIM
     Indication: PRODUCT USED FOR UNKNOWN INDICATION
     Dosage: 160MG + 800MG AT BREAKFAST AND LUNCH
     Route: 048
     Dates: start: 20180327, end: 20180404
  7. PARACETAMOL [Concomitant]
     Active Substance: ACETAMINOPHEN
     Dosage: 800 MILLIGRAM
     Route: 048
     Dates: start: 20180327, end: 20180404
  8. SALBUTAMOL [Concomitant]
     Active Substance: ALBUTEROL
     Indication: PRODUCT USED FOR UNKNOWN INDICATION
     Dosage: 10 MILLIGRAM
     Route: 055
     Dates: start: 20180326, end: 20180326
  9. SALBUTAMOL [Concomitant]
     Active Substance: ALBUTEROL
     Dosage: 6 MILLIGRAM
     Route: 055
     Dates: start: 20180326, end: 20180326
  10. BUDESONIDE. [Concomitant]
     Active Substance: BUDESONIDE
     Indication: PRODUCT USED FOR UNKNOWN INDICATION
     Dosage: 2 INHALATIONS/8HRS
     Route: 055
     Dates: start: 20180326, end: 20180329
  11. DEXAMETHASONE. [Suspect]
     Active Substance: DEXAMETHASONE
     Indication: PLASMA CELL MYELOMA
     Route: 048
     Dates: start: 20170220
  12. DIGOXINA [Concomitant]
     Active Substance: DIGOXIN
     Indication: ANGINA PECTORIS
     Dosage: .25 MILLIGRAM
     Route: 065
     Dates: start: 20180112
  13. ALOPURINOL [Concomitant]
     Active Substance: ALLOPURINOL
     Indication: HYPERURICAEMIA
     Dosage: 300 MILLIGRAM
     Route: 065
     Dates: start: 20140126
  14. ACENOCUMAROL [Concomitant]
     Active Substance: ACENOCOUMAROL
     Indication: PRODUCT USED FOR UNKNOWN INDICATION
     Route: 048
     Dates: start: 20180329, end: 20180404
  15. PIPERACILLINA+TAZOBACTAM [Concomitant]
     Indication: PRODUCT USED FOR UNKNOWN INDICATION
     Dosage: 4G + 0.5G PER 8HRS
     Route: 041
     Dates: start: 20180326, end: 20180326
  16. ACICLOVIR [Concomitant]
     Active Substance: ACYCLOVIR
     Dosage: 800 MILLIGRAM
     Route: 048
     Dates: start: 20180327, end: 20180404
  17. SALBUTAMOL [Concomitant]
     Active Substance: ALBUTEROL
     Dosage: 3 INHALATIONS EVERY 6HRS
     Route: 055
     Dates: start: 20180326, end: 20180404
  18. IPRATROPRIUM BROMIDE [Concomitant]
     Indication: PRODUCT USED FOR UNKNOWN INDICATION
     Dosage: 2000 MICROGRAM
     Route: 055
     Dates: start: 20180326, end: 20180326
  19. IPRATROPRIUM BROMIDE [Concomitant]
     Dosage: 3 INHALATIONS/6HRS
     Route: 055
     Dates: start: 20180326, end: 20180404
  20. SIMVASTATINA [Concomitant]
     Active Substance: SIMVASTATIN
     Dosage: 40 MILLIGRAM
     Route: 048
     Dates: start: 20180326, end: 20180404
  21. ALOPURINOL [Concomitant]
     Active Substance: ALLOPURINOL
     Dosage: 300 MILLIGRAM
     Route: 048
     Dates: start: 20180326, end: 20180404
  22. LOSARTAN. [Concomitant]
     Active Substance: LOSARTAN
     Indication: PRODUCT USED FOR UNKNOWN INDICATION
     Dosage: 100 MILLIGRAM
     Route: 065
     Dates: start: 20090519
  23. HYDROCORTISONA [Concomitant]
     Indication: PRODUCT USED FOR UNKNOWN INDICATION
     Dosage: 200 MILLIGRAM
     Route: 041
     Dates: start: 20180326, end: 20180326
  24. PARACETAMOL [Concomitant]
     Active Substance: ACETAMINOPHEN
     Indication: PRODUCT USED FOR UNKNOWN INDICATION
     Dosage: 1 GRAM
     Route: 041
     Dates: start: 20180326, end: 20180326
  25. PARACETAMOL [Concomitant]
     Active Substance: ACETAMINOPHEN
     Dosage: 3 GRAM
     Route: 041
     Dates: start: 20180326, end: 20180329
  26. PREGABALIN. [Concomitant]
     Active Substance: PREGABALIN
     Indication: PRODUCT USED FOR UNKNOWN INDICATION
     Dosage: 300 MILLIGRAM
     Route: 048
     Dates: start: 20180326, end: 20180404
  27. FOLIC ACID. [Concomitant]
     Active Substance: FOLIC ACID
     Indication: PRODUCT USED FOR UNKNOWN INDICATION
     Dosage: 5 MILLIGRAM
     Route: 048
     Dates: start: 20180326, end: 20180327
  28. LOSARTAN. [Concomitant]
     Active Substance: LOSARTAN
     Dosage: 100 MILLIGRAM
     Route: 048
     Dates: start: 20180326, end: 20180404
  29. PREDNISONA [Concomitant]
     Active Substance: PREDNISONE
     Indication: PRODUCT USED FOR UNKNOWN INDICATION
     Dosage: 10 MILLIGRAM
     Route: 048
     Dates: start: 20180328, end: 20180403
  30. IPRATROPRIUM BROMIDE [Concomitant]
     Dosage: 2000 MICROGRAM
     Route: 055
     Dates: start: 20180326, end: 20180326
  31. OMEPRAZOL [Concomitant]
     Active Substance: OMEPRAZOLE
     Indication: GASTRITIS PROPHYLAXIS
     Dosage: 20 MILLIGRAM
     Route: 065
     Dates: start: 20151103
  32. OMEPRAZOL [Concomitant]
     Active Substance: OMEPRAZOLE
     Dosage: 20 MILLIGRAM
     Route: 048
     Dates: start: 20180326, end: 20180404
  33. METHYLPREDNISOLONA [Concomitant]
     Indication: PRODUCT USED FOR UNKNOWN INDICATION
     Dosage: 80 MILLIGRAM
     Route: 041
     Dates: start: 20180326, end: 20180326
  34. METHYLPREDNISOLONA [Concomitant]
     Dosage: 20 MILLIGRAM
     Route: 041
     Dates: start: 20180326, end: 20180326
  35. ALPRAZOLAM. [Concomitant]
     Active Substance: ALPRAZOLAM
     Indication: PRODUCT USED FOR UNKNOWN INDICATION
     Dosage: .25 MILLIGRAM
     Route: 048
     Dates: start: 20180327, end: 20180404
  36. REVLIMID [Suspect]
     Active Substance: LENALIDOMIDE
     Indication: PLASMA CELL MYELOMA
     Route: 048
     Dates: start: 20170220, end: 20180321
  37. MLN9708 [Suspect]
     Active Substance: IXAZOMIB
     Indication: PLASMA CELL MYELOMA
     Route: 048
     Dates: start: 20170220
  38. DIGOXINA [Concomitant]
     Active Substance: DIGOXIN
     Dosage: .25 MILLIGRAM
     Route: 048
     Dates: start: 20180327, end: 20180404
  39. CAFINITRINA [Concomitant]
     Indication: ANGINA PECTORIS
     Dosage: 20 MILLIGRAM
     Route: 065
     Dates: start: 20170207
  40. ATENOLOL. [Concomitant]
     Active Substance: ATENOLOL
     Indication: PRODUCT USED FOR UNKNOWN INDICATION
     Dosage: 50 MILLIGRAM
     Route: 048
     Dates: start: 20180326, end: 20180327
  41. PIPERACILLINA+TAZOBACTAM [Concomitant]
     Dosage: 4G + 0.5G PER 8HRS
     Route: 041
     Dates: start: 20180326, end: 20180404
  42. ACICLOVIR [Concomitant]
     Active Substance: ACYCLOVIR
     Indication: PRODUCT USED FOR UNKNOWN INDICATION
     Dosage: 200 MILLIGRAM
     Route: 048
     Dates: start: 20180327, end: 20180327
  43. BUDESONIDE. [Concomitant]
     Active Substance: BUDESONIDE
     Dosage: 2 INHALATIONS/8HRS
     Route: 055
     Dates: start: 20180326, end: 20180329
  44. METHYLPREDNISOLONA [Concomitant]
     Dosage: 20 MILLIGRAM
     Route: 041
     Dates: start: 20180326, end: 20180328

REACTIONS (1)
  - Bronchitis [Recovered/Resolved]

NARRATIVE: CASE EVENT DATE: 20180321
